FAERS Safety Report 7207519-9 (Version None)
Quarter: 2011Q1

REPORT INFORMATION
  Report Type: 
  Country: None (occurrence: None)
  Receive Date: 20110103
  Receipt Date: 20101223
  Transmission Date: 20110831
  Serious: Yes (Other)
  Sender: FDA-Public Use
  Company Number: CHPA2010US16947

PATIENT
  Sex: Female

DRUGS (1)
  1. MAALOX ADV MAXIMUM STRENGTH ANTACID/ANTIGAS [Suspect]
     Indication: DYSPEPSIA
     Dosage: 1 TSP, ONCE/SINGLE
     Route: 048
     Dates: start: 20101028, end: 20101028

REACTIONS (4)
  - ANAPHYLACTIC REACTION [None]
  - EYE SWELLING [None]
  - RASH [None]
  - PRURITUS GENERALISED [None]
